FAERS Safety Report 21542248 (Version 2)
Quarter: 2023Q4

REPORT INFORMATION
  Report Type: Spontaneous
  Country: US (occurrence: US)
  Receive Date: 20221102
  Receipt Date: 20231115
  Transmission Date: 20240109
  Serious: Yes (Hospitalization)
  Sender: FDA-Public Use
  Company Number: US-PFIZER INC-PV202200094532

PATIENT
  Age: 59 Year
  Sex: Female

DRUGS (2)
  1. XELJANZ [Suspect]
     Active Substance: TOFACITINIB CITRATE
     Indication: Rheumatoid arthritis
     Dosage: UNK
  2. XELJANZ [Suspect]
     Active Substance: TOFACITINIB CITRATE
     Indication: Mixed connective tissue disease

REACTIONS (6)
  - Thrombosis [Unknown]
  - Peripheral swelling [Not Recovered/Not Resolved]
  - Arthralgia [Unknown]
  - Pain in extremity [Unknown]
  - Musculoskeletal stiffness [Unknown]
  - Bradykinesia [Unknown]
